FAERS Safety Report 7928958-4 (Version None)
Quarter: 2011Q4

REPORT INFORMATION
  Report Type: 
  Country: None (occurrence: None)
  Receive Date: 20111118
  Receipt Date: 20111115
  Transmission Date: 20120403
  Serious: Yes (Death, Hospitalization, Other)
  Sender: FDA-Public Use
  Company Number: AU-MERCK-0909USA00822

PATIENT
  Age: 56 Year
  Sex: Female

DRUGS (2)
  1. LIPITOR [Suspect]
     Route: 065
     Dates: start: 20050101, end: 20070101
  2. ZETIA [Suspect]
     Route: 048

REACTIONS (4)
  - MUSCULAR WEAKNESS [None]
  - MUSCLE NECROSIS [None]
  - MYALGIA [None]
  - BLOOD CREATINE PHOSPHOKINASE INCREASED [None]
